FAERS Safety Report 16869533 (Version 1)
Quarter: 2019Q3

REPORT INFORMATION
  Report Type: Spontaneous
  Country: SG (occurrence: SG)
  Receive Date: 20190930
  Receipt Date: 20190930
  Transmission Date: 20191005
  Serious: Yes (Other)
  Sender: FDA-Public Use
  Company Number: SG-PFIZER INC-2019408115

PATIENT
  Age: 3 Year
  Sex: Male

DRUGS (2)
  1. CARBOPLATIN. [Suspect]
     Active Substance: CARBOPLATIN
     Indication: GLIONEURONAL TUMOUR
     Dosage: UNK
  2. VINCRISTINE SULFATE. [Suspect]
     Active Substance: VINCRISTINE SULFATE
     Indication: GLIONEURONAL TUMOUR
     Dosage: UNK

REACTIONS (4)
  - Neuropathy peripheral [Unknown]
  - Peroneal nerve palsy [Unknown]
  - Product use in unapproved indication [Unknown]
  - Off label use [Unknown]
